FAERS Safety Report 6348670-5 (Version None)
Quarter: 2009Q3

REPORT INFORMATION
  Report Type: 
  Country: None (occurrence: None)
  Receive Date: 20090911
  Receipt Date: 20090831
  Transmission Date: 20100115
  Serious: Yes (Death, Hospitalization)
  Sender: FDA-Public Use
  Company Number: SK-PFIZER INC-2008054075

PATIENT
  Age: 72 Year

DRUGS (11)
  1. BLINDED *NO SUBJECT DRUG [Suspect]
     Indication: LUNG NEOPLASM MALIGNANT
     Dosage: 37.5 MG, 1X/DAY
     Route: 048
     Dates: start: 20080527, end: 20080628
  2. BLINDED *PLACEBO [Suspect]
     Indication: LUNG NEOPLASM MALIGNANT
     Dosage: 37.5 MG, 1X/DAY
     Route: 048
     Dates: start: 20080527, end: 20080628
  3. BLINDED SUNITINIB MALATE [Suspect]
     Indication: LUNG NEOPLASM MALIGNANT
     Dosage: 37.5 MG, 1X/DAY
     Route: 048
     Dates: start: 20080527, end: 20080628
  4. *ERLOTINIB [Suspect]
     Indication: LUNG NEOPLASM MALIGNANT
     Dosage: 150 MG, 1X/DAY
     Route: 048
     Dates: start: 20080527, end: 20080628
  5. BUPRENORPHINE HCL [Concomitant]
     Route: 062
     Dates: start: 20080421
  6. DALTEPARIN SODIUM [Concomitant]
     Route: 058
     Dates: start: 20080326
  7. SERETIDE [Concomitant]
     Route: 055
     Dates: start: 20080229
  8. SPIRIVA [Concomitant]
     Route: 055
     Dates: start: 20080229
  9. XANAX [Concomitant]
     Route: 048
     Dates: start: 20080326
  10. REASEC [Concomitant]
     Route: 048
     Dates: start: 20080528
  11. LOPERAMIDE [Concomitant]
     Route: 048
     Dates: start: 20080611

REACTIONS (2)
  - CEREBRAL ISCHAEMIA [None]
  - DIARRHOEA [None]
